FAERS Safety Report 4729587-6 (Version None)
Quarter: 2005Q3

REPORT INFORMATION
  Report Type: 
  Country: None (occurrence: None)
  Receive Date: 20050801
  Receipt Date: 20050408
  Transmission Date: 20060218
  Serious: Yes (Hospitalization, Disabling, Other)
  Sender: FDA-Public Use
  Company Number: US-MERCK-0504USA01273

PATIENT
  Age: 57 Year
  Sex: Male
  Weight: 86 kg

DRUGS (16)
  1. VIOXX [Suspect]
     Indication: INTERVERTEBRAL DISC DEGENERATION
     Route: 048
     Dates: start: 20000101, end: 20040930
  2. VIOXX [Suspect]
     Route: 048
     Dates: start: 20000101, end: 20040930
  3. VIOXX [Suspect]
     Indication: PAIN IN EXTREMITY
     Route: 048
     Dates: start: 20000101, end: 20040930
  4. VIOXX [Suspect]
     Route: 048
     Dates: start: 20000101, end: 20040930
  5. NEURONTIN [Concomitant]
     Route: 065
     Dates: start: 20030101
  6. ALLEGRA [Concomitant]
     Indication: ALLERGIC SINUSITIS
     Route: 065
  7. FLONASE [Concomitant]
     Route: 065
  8. HUMIBID [Concomitant]
     Route: 065
  9. ATENOLOL [Concomitant]
     Indication: HYPERTENSION
     Route: 065
  10. TYLENOL (CAPLET) [Concomitant]
     Indication: PAIN
     Route: 065
     Dates: start: 19950101
  11. LANOXIN [Concomitant]
     Indication: ARRHYTHMIA
     Route: 065
     Dates: start: 19960101
  12. LANOXIN [Concomitant]
     Indication: ATRIAL FIBRILLATION
     Route: 065
     Dates: start: 19960101
  13. ALTACE [Concomitant]
     Route: 065
  14. DIOVAN [Concomitant]
     Indication: PAIN PROPHYLAXIS
     Route: 065
  15. RESTORIL [Concomitant]
     Route: 065
  16. TRICOR [Concomitant]
     Indication: BLOOD CHOLESTEROL INCREASED
     Route: 065
     Dates: start: 20040101

REACTIONS (19)
  - ABDOMINAL PAIN UPPER [None]
  - ANHEDONIA [None]
  - CARDIAC DISORDER [None]
  - CARDIOVASCULAR DISORDER [None]
  - CAROTID ARTERY STENOSIS [None]
  - CEREBROVASCULAR ACCIDENT [None]
  - CHEST DISCOMFORT [None]
  - CORONARY ARTERY DISEASE [None]
  - DEPRESSION [None]
  - FATIGUE [None]
  - GASTROOESOPHAGEAL REFLUX DISEASE [None]
  - HEADACHE [None]
  - HERNIA REPAIR [None]
  - HYPERTENSION [None]
  - NAUSEA [None]
  - PAIN [None]
  - PERSONALITY CHANGE [None]
  - POLYTRAUMATISM [None]
  - SUICIDE ATTEMPT [None]
